FAERS Safety Report 10066761 (Version 1)
Quarter: 2014Q2

REPORT INFORMATION
  Report Type: Report from Study
  Country: US (occurrence: US)
  Receive Date: 20140408
  Receipt Date: 20140408
  Transmission Date: 20141212
  Serious: Yes (Hospitalization)
  Sender: FDA-Public Use
  Company Number: PHHY2014US037940

PATIENT
  Age: 58 Year
  Sex: Male

DRUGS (9)
  1. OXALIPLATIN [Suspect]
     Indication: COLON CANCER
     Dosage: 85 MG/M2 EVERY 2 WEEK
     Route: 042
     Dates: start: 20131115
  2. OXALIPLATIN [Suspect]
     Dosage: 85 MG/M2, UNK
     Route: 042
     Dates: start: 20140108
  3. 5-FLUOROURACIL [Suspect]
     Indication: COLON CANCER
     Dosage: 400 MG/M2 EVERY 2 WEEK
     Route: 042
     Dates: start: 20131115
  4. 5-FLUOROURACIL [Suspect]
     Dosage: 2400 MG/M2, UNK
     Route: 042
  5. 5-FLUOROURACIL [Suspect]
     Dosage: 400 MG/M2 EVERY 2 WEEK
     Route: 042
     Dates: start: 20140108
  6. FOLINIC ACID [Suspect]
     Indication: COLON CANCER
     Dosage: 400 MG/M2, EVERY 2 WEEK
     Route: 042
     Dates: start: 20131115
  7. FOLINIC ACID [Suspect]
     Dosage: 400 MG/M2 EVERY 2 WEEK
     Route: 042
     Dates: start: 20140108
  8. BEVACIZUMAB [Suspect]
     Indication: COLON CANCER
     Dosage: 5 MG/KG EVERY 2 WEEK
     Route: 042
     Dates: start: 20131115
  9. BEVACIZUMAB [Suspect]
     Dosage: 5 MG/KG EVERY 2 WEEK
     Route: 042
     Dates: start: 20140108

REACTIONS (5)
  - Deep vein thrombosis [Recovered/Resolved]
  - Oedema peripheral [Recovered/Resolved]
  - Pain in extremity [Recovered/Resolved]
  - Erythema [Recovered/Resolved]
  - Limb discomfort [Recovered/Resolved]
